FAERS Safety Report 16160029 (Version 3)
Quarter: 2019Q2

REPORT INFORMATION
  Report Type: Spontaneous
  Country: US (occurrence: US)
  Receive Date: 20190404
  Receipt Date: 20190505
  Transmission Date: 20190711
  Serious: No
  Sender: FDA-Public Use
  Company Number: US-JNJFOC-20190320273

PATIENT
  Sex: Male
  Weight: 77.11 kg

DRUGS (3)
  1. TYLENOL EXTRA STRENGTH [Suspect]
     Active Substance: ACETAMINOPHEN
     Indication: MUSCULOSKELETAL STIFFNESS
     Dosage: 500MG, AS NEEDED
     Route: 065
     Dates: start: 201709
  2. TYLENOL EXTRA STRENGTH [Suspect]
     Active Substance: ACETAMINOPHEN
     Indication: ARTHRALGIA
     Dosage: 500MG, AS NEEDED
     Route: 065
     Dates: start: 201709
  3. TYLENOL EXTRA STRENGTH [Suspect]
     Active Substance: ACETAMINOPHEN
     Indication: PAIN
     Dosage: 500MG, AS NEEDED
     Route: 065
     Dates: start: 201709

REACTIONS (1)
  - Drug ineffective [Unknown]
